FAERS Safety Report 15195628 (Version 1)
Quarter: 2018Q3

REPORT INFORMATION
  Report Type: Spontaneous
  Country: US (occurrence: US)
  Receive Date: 20180626
  Receipt Date: 20180626
  Transmission Date: 20181010
  Serious: Yes (Life-Threatening, Hospitalization, Disabling)
  Sender: FDA-Public Use
  Company Number: None

PATIENT
  Age: 73 Year
  Sex: Female

DRUGS (8)
  1. ASA EC [Concomitant]
     Active Substance: ASPIRIN
  2. PREDNISONE. [Concomitant]
     Active Substance: PREDNISONE
  3. INSULIN SHOT [Concomitant]
  4. CELEBREX [Concomitant]
     Active Substance: CELECOXIB
  5. TB MEDS [Concomitant]
  6. PROLIA [Suspect]
     Active Substance: DENOSUMAB
     Indication: OSTEOPOROSIS
     Dosage: ?          QUANTITY:1 INJECTION(S);OTHER FREQUENCY:ONCE EVERY 6 MONTH;?
     Route: 058
  7. VITAMIN D [Concomitant]
     Active Substance: CHOLECALCIFEROL
  8. DOCUSATE [Concomitant]
     Active Substance: DOCUSATE

REACTIONS (16)
  - Pain in jaw [None]
  - Toothache [None]
  - Gingivitis [None]
  - Osteonecrosis of jaw [None]
  - Back pain [None]
  - Asthenia [None]
  - Gait disturbance [None]
  - Type 1 diabetes mellitus [None]
  - Decreased appetite [None]
  - Groin pain [None]
  - Tuberculosis [None]
  - Weight decreased [None]
  - Pain in extremity [None]
  - Walking aid user [None]
  - Impaired driving ability [None]
  - Quality of life decreased [None]

NARRATIVE: CASE EVENT DATE: 20151027
